FAERS Safety Report 12220105 (Version 2)
Quarter: 2016Q2

REPORT INFORMATION
  Report Type: Spontaneous
  Country: US (occurrence: US)
  Receive Date: 20160330
  Receipt Date: 20160513
  Transmission Date: 20160815
  Serious: No
  Sender: FDA-Public Use
  Company Number: US-LEO PHARMA-240989

PATIENT
  Age: 67 Year
  Sex: Female

DRUGS (1)
  1. PICATO [Suspect]
     Active Substance: INGENOL MEBUTATE
     Indication: ACTINIC KERATOSIS
     Route: 061
     Dates: start: 20160316, end: 20160318

REACTIONS (13)
  - Application site dryness [Recovered/Resolved]
  - Application site vesicles [Recovered/Resolved]
  - Eyelid oedema [Recovered/Resolved]
  - Application site reaction [Recovered/Resolved]
  - Application site scab [Recovered/Resolved]
  - Incorrect dose administered [Unknown]
  - Application site erythema [Recovering/Resolving]
  - Application site induration [Recovered/Resolved]
  - Application site swelling [Recovered/Resolved]
  - Eye swelling [Recovered/Resolved]
  - Application site pruritus [Recovered/Resolved]
  - Eye swelling [Recovered/Resolved]
  - Drug administered at inappropriate site [Unknown]

NARRATIVE: CASE EVENT DATE: 20160316
